FAERS Safety Report 16788432 (Version 1)
Quarter: 2019Q3

REPORT INFORMATION
  Report Type: Spontaneous
  Country: DE (occurrence: DE)
  Receive Date: 20190910
  Receipt Date: 20190910
  Transmission Date: 20191005
  Serious: Yes (Hospitalization, Other)
  Sender: FDA-Public Use
  Company Number: DE-ROCHE-2400185

PATIENT
  Age: 70 Year
  Sex: Female

DRUGS (10)
  1. PACLITAXEL. [Suspect]
     Active Substance: PACLITAXEL
     Indication: TRIPLE NEGATIVE BREAST CANCER
     Route: 065
     Dates: start: 201711, end: 201803
  2. CAPECITABINE. [Suspect]
     Active Substance: CAPECITABINE
     Indication: TRIPLE NEGATIVE BREAST CANCER
     Dosage: END DATE: SEP/2019
     Route: 065
     Dates: start: 201902, end: 201908
  3. SIMVASTATIN. [Concomitant]
     Active Substance: SIMVASTATIN
     Route: 055
  4. VIANI [Concomitant]
     Active Substance: FLUTICASONE PROPIONATE\SALMETEROL XINAFOATE
     Route: 055
  5. BEVACIZUMAB. [Suspect]
     Active Substance: BEVACIZUMAB
     Indication: TRIPLE NEGATIVE BREAST CANCER
     Route: 065
     Dates: start: 201711, end: 201803
  6. BEVACIZUMAB. [Suspect]
     Active Substance: BEVACIZUMAB
     Route: 065
     Dates: start: 201804, end: 201902
  7. ZOLEDRONIC ACID. [Concomitant]
     Active Substance: ZOLEDRONIC ACID
     Route: 065
     Dates: start: 201710
  8. RAMIPRIL. [Concomitant]
     Active Substance: RAMIPRIL
  9. METOPROLOL. [Concomitant]
     Active Substance: METOPROLOL
  10. TORASEMID [Concomitant]
     Active Substance: TORSEMIDE

REACTIONS (5)
  - Metastases to peritoneum [Unknown]
  - Sepsis [Unknown]
  - Cholecystitis acute [Unknown]
  - Ascites [Unknown]
  - Subileus [Unknown]
